FAERS Safety Report 5001287-7 (Version None)
Quarter: 2006Q2

REPORT INFORMATION
  Report Type: 
  Country: None (occurrence: None)
  Receive Date: 20060512
  Receipt Date: 20060503
  Transmission Date: 20061013
  Serious: Yes (Hospitalization)
  Sender: FDA-Public Use
  Company Number: FR-MERCK-0605FRA00010

PATIENT
  Age: 89 Year
  Sex: Female

DRUGS (3)
  1. ZOCOR [Suspect]
     Indication: HYPERCHOLESTEROLAEMIA
     Route: 048
     Dates: end: 20060401
  2. TRAMADOL HYDROCHLORIDE [Concomitant]
     Indication: OSTEOARTHRITIS
     Route: 048
     Dates: end: 20060401
  3. AMOXICILLIN AND CLAVULANATE POTASSIUM [Suspect]
     Indication: INFECTION
     Route: 048
     Dates: start: 20060322, end: 20060402

REACTIONS (2)
  - LEUKOPENIA [None]
  - NEUTROPENIA [None]
